FAERS Safety Report 8159601 (Version 5)
Quarter: 2012Q4

REPORT INFORMATION
  Report Type: Report from Study
  Country: US (occurrence: US)
  Receive Date: 20110928
  Receipt Date: 20120919
  Transmission Date: 20130627
  Serious: Yes (Hospitalization)
  Sender: FDA-Public Use
  Company Number: US-AMGEN-USACT2011048894

PATIENT
  Age: 60 Year
  Sex: Male
  Weight: 85.5 kg

DRUGS (32)
  1. CINACALCET HCL [Suspect]
     Indication: HYPERPARATHYROIDISM SECONDARY
     Dosage: 30 mg, UNK
     Dates: start: 20110518
  2. EPOGEN [Concomitant]
     Indication: ANAEMIA
     Dosage: UNK
     Route: 058
  3. PRAVASTATIN [Concomitant]
     Indication: BLOOD CHOLESTEROL INCREASED
     Dosage: 20 mg, UNK
     Route: 048
     Dates: start: 20080415
  4. ALBUTEROL [Concomitant]
     Indication: ASTHMA
     Dosage: 90 mug, UNK
     Route: 055
     Dates: start: 20090928
  5. TRAMADOL HCL [Concomitant]
     Indication: PAIN
     Dosage: 50 mg, UNK
     Route: 048
     Dates: start: 20110217
  6. SILVER SULFADIAZINE [Concomitant]
     Indication: INFECTION
     Dosage: UNK
     Route: 061
     Dates: start: 20110712, end: 20110811
  7. SILVER SULFADIAZINE [Concomitant]
     Indication: BLISTER
  8. ASPIRIN [Concomitant]
     Indication: ANTICOAGULANT THERAPY
     Dosage: 81 mg, UNK
     Route: 048
     Dates: start: 20110610
  9. CALCIUM ACETATE [Concomitant]
     Dosage: 1334 mg, UNK
     Route: 048
     Dates: start: 20110603, end: 20110921
  10. ACETAMINOPHEN [Concomitant]
     Indication: PAIN
     Dosage: 325 mg, UNK
     Route: 048
     Dates: start: 20110523
  11. ACETAMINOPHEN [Concomitant]
     Indication: PYREXIA
  12. CLOPIDOGREL BISULFATE [Concomitant]
     Indication: ANTICOAGULANT THERAPY
     Dosage: 75 mg, UNK
     Route: 048
     Dates: start: 20110610
  13. CREON [Concomitant]
     Indication: PANCREATIC INSUFFICIENCY
     Dosage: UNK
     Route: 048
     Dates: start: 20101209, end: 20110921
  14. DIPHENOXYLATE/ATROPINE [Concomitant]
     Indication: DIARRHOEA
     Dosage: 2.525 mg, UNK
     Route: 048
     Dates: start: 20110513, end: 20111113
  15. GABAPENTIN [Concomitant]
     Indication: PAIN
     Dosage: 100 mg, UNK
     Route: 048
     Dates: start: 20110418
  16. DIPHENHYDRAMINE HCL [Concomitant]
     Indication: HYPERSENSITIVITY
     Dosage: 50 mg, UNK
     Route: 048
     Dates: start: 20040114
  17. DIPHENHYDRAMINE HCL [Concomitant]
     Indication: RASH
  18. DIPHENHYDRAMINE HCL [Concomitant]
     Indication: RASH
  19. KETOROLAC TROMETHAMINE [Concomitant]
     Indication: EYE PAIN
     Dosage: UNK
     Route: 047
     Dates: start: 20110322
  20. TRIAMCINOLONE ACETATE [Concomitant]
     Indication: RASH
     Dosage: UNK
     Route: 061
     Dates: start: 20110422
  21. LEVITRA [Concomitant]
     Indication: ERECTILE DYSFUNCTION
     Dosage: 20 mg, UNK
     Route: 048
     Dates: start: 20110606
  22. HYDROCORTISONE [Concomitant]
     Indication: RASH
     Dosage: UNK
     Route: 061
     Dates: start: 20110401
  23. IBUPROFEN [Concomitant]
     Indication: PAIN
     Dosage: 800 mg, UNK
     Route: 048
     Dates: start: 20020607, end: 20110724
  24. LOPERAMIDE [Concomitant]
     Indication: DIARRHOEA
     Dosage: 2 mg, UNK
     Route: 048
     Dates: start: 20110309
  25. NEPHROCAPS [Concomitant]
     Indication: RENAL FAILURE CHRONIC
     Dosage: UNK
     Route: 048
     Dates: start: 20020328
  26. OMEPRAZOLE [Concomitant]
     Indication: DYSPEPSIA
     Dosage: 20 mg, UNK
     Route: 048
     Dates: start: 20100924
  27. PANCRELIPASE [Concomitant]
     Indication: PANCREATIC INSUFFICIENCY
     Dosage: UNK
     Route: 048
     Dates: start: 20101209, end: 20110921
  28. PANCRELIPASE [Concomitant]
     Indication: PANCREATITIS CHRONIC
  29. PANCRELIPASE [Concomitant]
     Indication: PANCREATIC INSUFFICIENCY
  30. HEPARIN [Concomitant]
     Indication: RENAL FAILURE CHRONIC
     Dosage: UNK
     Route: 042
     Dates: start: 20020301
  31. AUGMENTIN [Concomitant]
     Indication: INFECTION
     Dosage: UNK
     Route: 048
     Dates: start: 20110629, end: 20110709
  32. AUGMENTIN [Concomitant]
     Indication: BLISTER

REACTIONS (1)
  - Hypophosphataemia [Recovered/Resolved]
